FAERS Safety Report 6206873-4 (Version None)
Quarter: 2009Q2

REPORT INFORMATION
  Report Type: 
  Country: None (occurrence: None)
  Receive Date: 20090528
  Receipt Date: 20090518
  Transmission Date: 20091009
  Serious: Yes (Death)
  Sender: FDA-Public Use
  Company Number: US-WATSON-2009-03533

PATIENT
  Age: 45 Year
  Sex: Male
  Weight: 158.73 kg

DRUGS (1)
  1. PROPAFENONE (WATSON LABORATORIES) [Suspect]
     Indication: ARRHYTHMIA
     Dosage: UNK
     Route: 065
     Dates: start: 20090201, end: 20090318

REACTIONS (3)
  - CARDIAC DISORDER [None]
  - HYPOTENSION [None]
  - OBESITY [None]
